FAERS Safety Report 13283386 (Version 2)
Quarter: 2018Q1

REPORT INFORMATION
  Report Type: Spontaneous
  Country: US (occurrence: US)
  Receive Date: 20170301
  Receipt Date: 20180307
  Transmission Date: 20180508
  Serious: No
  Sender: FDA-Public Use
  Company Number: US-ABBVIE-16K-163-1765528-00

PATIENT
  Age: 67 Year
  Sex: Female

DRUGS (1)
  1. ANDROGEL [Suspect]
     Active Substance: TESTOSTERONE
     Indication: EXPOSURE VIA PARTNER
     Route: 061

REACTIONS (6)
  - Rash [Recovered/Resolved]
  - Autoimmune disorder [Not Recovered/Not Resolved]
  - Genital disorder female [Not Recovered/Not Resolved]
  - Accidental exposure to product [Not Recovered/Not Resolved]
  - Pain [Not Recovered/Not Resolved]
  - Uterine cervix ulcer [Not Recovered/Not Resolved]
